FAERS Safety Report 5162973-1 (Version None)
Quarter: 2006Q4

REPORT INFORMATION
  Report Type: 
  Country: None (occurrence: None)
  Receive Date: 20061201
  Receipt Date: 20061109
  Transmission Date: 20070319
  Serious: Yes (Other)
  Sender: FDA-Public Use
  Company Number: 2006GB02031

PATIENT
  Age: 51 Year
  Sex: Female
  Weight: 56.9 kg

DRUGS (4)
  1. CRESTOR [Suspect]
     Indication: HYPERLIPIDAEMIA
     Route: 048
     Dates: start: 20060429, end: 20061108
  2. IDEOS [Concomitant]
     Indication: OSTEOPOROSIS
     Route: 048
     Dates: start: 20060901
  3. IDEOS [Concomitant]
     Indication: OSTEOPENIA
     Route: 048
     Dates: start: 20060901
  4. ASPIRIN [Concomitant]
     Indication: PROPHYLAXIS
     Route: 048
     Dates: start: 20051101

REACTIONS (2)
  - HAIR COLOUR CHANGES [None]
  - MADAROSIS [None]
